FAERS Safety Report 6980555-3 (Version None)
Quarter: 2010Q3

REPORT INFORMATION
  Report Type: 
  Country: None (occurrence: None)
  Receive Date: 20100914
  Receipt Date: 20100908
  Transmission Date: 20110219
  Serious: Yes (Death, Life-Threatening, Hospitalization, Disabling, Other)
  Sender: FDA-Public Use
  Company Number: PHHY2010US54461

PATIENT
  Sex: Male
  Weight: 60 kg

DRUGS (5)
  1. EXJADE [Suspect]
     Indication: SICKLE CELL ANAEMIA
     Dosage: 875 MG, QD
     Route: 048
     Dates: start: 20080101
  2. EXJADE [Suspect]
     Dosage: 1500 MG, QD
     Route: 048
     Dates: start: 20080101, end: 20100418
  3. EXJADE [Suspect]
     Dosage: 2000 MG, QD
     Route: 048
  4. PENICILLIN [Concomitant]
     Indication: SICKLE CELL ANAEMIA
     Dosage: 250 MG, BID
     Route: 048
  5. FOLIC ACID [Concomitant]
     Indication: SICKLE CELL ANAEMIA
     Dosage: UNK

REACTIONS (15)
  - BLOOD ALBUMIN DECREASED [None]
  - BLOOD BILIRUBIN INCREASED [None]
  - BLOOD CALCIUM DECREASED [None]
  - BLOOD POTASSIUM DECREASED [None]
  - CARBON DIOXIDE DECREASED [None]
  - EXTRAMEDULLARY HAEMOPOIESIS [None]
  - FIBROSIS [None]
  - HAEMOSIDEROSIS [None]
  - HEPATIC FAILURE [None]
  - PROTEIN TOTAL DECREASED [None]
  - RED BLOOD CELL COUNT DECREASED [None]
  - RED CELL DISTRIBUTION WIDTH INCREASED [None]
  - RENAL FAILURE [None]
  - VENOOCCLUSIVE LIVER DISEASE [None]
  - WHITE BLOOD CELL COUNT INCREASED [None]
